FAERS Safety Report 26210420 (Version 1)
Quarter: 2025Q4

REPORT INFORMATION
  Report Type: Spontaneous
  Country: CA (occurrence: CA)
  Receive Date: 20251229
  Receipt Date: 20251229
  Transmission Date: 20260117
  Serious: Yes (Death, Life-Threatening, Hospitalization, Disabling, Congenital Anomaly, Other)
  Sender: AMGEN
  Company Number: CA-HALEON-2279909

PATIENT
  Age: 43 Year
  Sex: Female
  Weight: 70 kg

DRUGS (76)
  1. ERENUMAB [Suspect]
     Active Substance: ERENUMAB
     Indication: Migraine
     Dosage: UNK(AOOE, PATIENT ROA: UNKNOWN)
     Route: 065
  2. ERENUMAB [Suspect]
     Active Substance: ERENUMAB
     Dosage: UNK
     Route: 058
  3. RITUXIMAB [Suspect]
     Active Substance: RITUXIMAB
     Indication: Rheumatoid arthritis
     Dosage: 265 MG(PATIENT ROA: INTRAVENOUS (NOT OTHERWISE SPECIFIED))
     Route: 040
  4. RITUXIMAB [Suspect]
     Active Substance: RITUXIMAB
     Dosage: UNK(DOSE FORM: UNKNOWNPATIENT ROA: INTRAVENOUS (NOT OTHERWISE SPECIFIED))
     Route: 040
  5. RITUXIMAB [Suspect]
     Active Substance: RITUXIMAB
     Dosage: UNK(DOSE FORM: UNKNOWNPATIENT ROA: INTRAVENOUS (NOT OTHERWISE SPECIFIED))
     Route: 040
  6. RITUXIMAB [Suspect]
     Active Substance: RITUXIMAB
     Dosage: UNK(DOSE FORM: UNKNOWN)
     Route: 058
  7. RITUXIMAB [Suspect]
     Active Substance: RITUXIMAB
     Dosage: UNK(DOSE FORM: UNKNOWN)
     Route: 016
  8. RITUXIMAB [Suspect]
     Active Substance: RITUXIMAB
     Dosage: UNK(DOSE FORM: UNKNOWNPATIENT ROA: UNKNOWN)
     Route: 065
  9. RITUXIMAB [Suspect]
     Active Substance: RITUXIMAB
     Dosage: UNK(DOSE FORM: UNKNOWN)
     Route: 048
  10. RITUXIMAB [Suspect]
     Active Substance: RITUXIMAB
     Dosage: 365 MG(DOSE FORM: UNKNOWNPATIENT ROA: UNKNOWN)
     Route: 065
  11. RITUXIMAB [Suspect]
     Active Substance: RITUXIMAB
     Dosage: UNK(DOSE FORM: UNKNOWNPATIENT ROA: INTRAVENOUS (NOT OTHERWISE SPECIFIED))
     Route: 040
  12. VOLTAROL [Suspect]
     Active Substance: DICLOFENAC SODIUM
     Indication: Rheumatoid arthritis
     Dosage: 50 MG(PATIENT ROA: UNKNOWN,  ACTI-GO)
     Route: 065
  13. VOLTAROL [Suspect]
     Active Substance: DICLOFENAC SODIUM
     Dosage: UNK
     Route: 058
  14. VOLTAROL [Suspect]
     Active Substance: DICLOFENAC SODIUM
     Dosage: 50 G(PATIENT ROA: UNKNOWN)
     Route: 065
  15. VOLTAROL [Suspect]
     Active Substance: DICLOFENAC SODIUM
     Dosage: PATIENT ROA: UNKNOWN
     Route: 065
  16. VOLTAROL [Suspect]
     Active Substance: DICLOFENAC SODIUM
     Dosage: PATIENT ROA: UNKNOWN
     Route: 065
  17. VOLTAROL [Suspect]
     Active Substance: DICLOFENAC SODIUM
     Dosage: UNK
     Route: 048
  18. VOLTAROL [Suspect]
     Active Substance: DICLOFENAC SODIUM
     Dosage: 225 MG
     Route: 048
  19. VOLTAREN [Suspect]
     Active Substance: DICLOFENAC SODIUM
     Indication: Product used for unknown indication
     Dosage: UNK(PATIENT ROA: UNKNOWN)
     Route: 065
  20. VOLTAREN [Suspect]
     Active Substance: DICLOFENAC SODIUM
     Indication: Rheumatoid arthritis
     Dosage: UNK(PATIENT ROA: UNKNOWN)
     Route: 065
  21. VOLTAREN [Suspect]
     Active Substance: DICLOFENAC SODIUM
     Dosage: 50 MG(PATIENT ROA: UNKNOWN)
     Route: 065
  22. VOLTAREN [Suspect]
     Active Substance: DICLOFENAC SODIUM
     Dosage: 500 MG, QD(EXPRESS,DOSE FORM: UNKNOWNPATIENT ROA: UNKNOWN)
     Route: 065
  23. VOLTAREN [Suspect]
     Active Substance: DICLOFENAC SODIUM
     Dosage: 50 G(DOSE FORM: UNKNOWNPATIENT ROA: UNKNOWN)
     Route: 065
  24. VOLTAREN [Suspect]
     Active Substance: DICLOFENAC SODIUM
     Dosage: UNK(DOSE FORM: UNKNOWN)
     Route: 058
  25. VOLTAREN [Suspect]
     Active Substance: DICLOFENAC SODIUM
     Dosage: UNK(DOSE FORM: UNKNOWNPATIENT ROA: UNKNOWN)
     Route: 065
  26. VOLTAREN [Suspect]
     Active Substance: DICLOFENAC SODIUM
     Dosage: 50 MG(DOSE FORM: UNKNOWNPATIENT ROA: UNKNOWN)
     Route: 065
  27. VOLTAREN [Suspect]
     Active Substance: DICLOFENAC SODIUM
     Dosage: 50 MG(DOSE FORM: UNKNOWN)
     Route: 065
  28. VOLTAREN [Suspect]
     Active Substance: DICLOFENAC SODIUM
     Dosage: 50 MG(DOSE FORM: UNKNOWNPATIENT ROA: UNKNOWN)
     Route: 065
  29. VOLTAREN [Suspect]
     Active Substance: DICLOFENAC SODIUM
     Dosage: UNK(DOSE FORM: UNKNOWNPATIENT ROA: UNKNOWN)
     Route: 065
  30. VOLTAREN [Suspect]
     Active Substance: DICLOFENAC SODIUM
     Dosage: UNK(DOSE FORM: UNKNOWN)
     Route: 048
  31. VOLTAREN [Suspect]
     Active Substance: DICLOFENAC SODIUM
     Dosage: UNK(DOSE FORM: UNKNOWNPATIENT ROA: UNKNOWN)
     Route: 065
  32. VOLTAREN [Suspect]
     Active Substance: DICLOFENAC SODIUM
     Dosage: 50 MG(DOSE FORM: UNKNOWN)
     Route: 065
  33. VOLTAREN [Suspect]
     Active Substance: DICLOFENAC SODIUM
     Dosage: 50 MG(DOSE FORM: UNKNOWNPATIENT ROA: UNKNOWN)
     Route: 065
  34. VOLTAREN [Suspect]
     Active Substance: DICLOFENAC SODIUM
     Dosage: 50 MG(DOSE FORM: UNKNOWNPATIENT ROA: UNKNOWN)
     Route: 065
  35. VOLTAREN [Suspect]
     Active Substance: DICLOFENAC SODIUM
     Dosage: 100 MG(DOSE FORM: UNKNOWNPATIENT ROA: UNKNOWN)
     Route: 065
  36. VOLTAREN [Suspect]
     Active Substance: DICLOFENAC SODIUM
     Dosage: 50 MG, QD(DOSE FORM: UNKNOWNPATIENT ROA: UNKNOWN)
     Route: 065
  37. VOLTAREN [Suspect]
     Active Substance: DICLOFENAC SODIUM
     Dosage: 50 MG(DOSE FORM: NOT SPECIFIEDPATIENT ROA: OPHTHALMIC)
     Route: 065
  38. ERELZI [Suspect]
     Active Substance: ETANERCEPT-SZZS
     Indication: Rheumatoid arthritis
     Dosage: 50 MG, QW
     Route: 058
  39. ERELZI [Suspect]
     Active Substance: ETANERCEPT-SZZS
     Dosage: UNK
     Route: 058
  40. ERELZI [Suspect]
     Active Substance: ETANERCEPT-SZZS
     Dosage: UNK(PATIENT ROA: UNKNOWN)
     Route: 065
  41. ERELZI [Suspect]
     Active Substance: ETANERCEPT-SZZS
     Dosage: 50 MG(DOSE FORM: NOT SPECIFIED)
     Route: 058
  42. ERELZI [Suspect]
     Active Substance: ETANERCEPT-SZZS
     Dosage: 50 MG(DOSE FORM: UNKNOWNPATIENT ROA: UNKNOWN)
     Route: 065
  43. ERELZI [Suspect]
     Active Substance: ETANERCEPT-SZZS
     Dosage: 50 MG(DOSE FORM: NOT SPECIFIED)
     Route: 058
  44. ERELZI [Suspect]
     Active Substance: ETANERCEPT-SZZS
     Dosage: 50 MG(DOSE FORM: UNKNOWNPATIENT ROA: UNKNOWN)
     Route: 065
  45. HYRIMOZ [Suspect]
     Active Substance: ADALIMUMAB-ADAZ
     Indication: Rheumatoid arthritis
     Dosage: 20 MG(DOSE FORM: SOLUTION FOR INJECTION)
     Route: 058
  46. HYRIMOZ [Suspect]
     Active Substance: ADALIMUMAB-ADAZ
     Indication: Psoriatic arthropathy
     Dosage: 3011.2 MG(DOSE FORM: SOLUTION FOR INJECTION)
     Route: 048
  47. HYRIMOZ [Suspect]
     Active Substance: ADALIMUMAB-ADAZ
     Dosage: 40 MG(DOSE FORM: SOLUTION FOR INJECTION)
     Route: 058
  48. HYRIMOZ [Suspect]
     Active Substance: ADALIMUMAB-ADAZ
     Dosage: UNK(DOSE FORM: SOLUTION FOR INJECTION)
     Route: 058
  49. HYRIMOZ [Suspect]
     Active Substance: ADALIMUMAB-ADAZ
     Dosage: 40 MG(DOSE FORM: SOLUTION FOR INJECTION)
     Route: 048
  50. HYRIMOZ [Suspect]
     Active Substance: ADALIMUMAB-ADAZ
     Dosage: UNK(DOSE FORM: SOLUTION SUBCUTANEOUS  )
     Route: 058
  51. OXYCODONE [Suspect]
     Active Substance: OXYCODONE
     Indication: Product used for unknown indication
     Dosage: 6 MG, QD(PATIENT ROA: UNKNOWN0
     Route: 065
  52. OXYCODONE [Suspect]
     Active Substance: OXYCODONE
     Dosage: UNK(PATIENT ROA: INTRAVENOUS (NOT OTHERWISE SPECIFIED))
     Route: 040
  53. OXYCODONE [Suspect]
     Active Substance: OXYCODONE
     Dosage: UNK(PATIENT ROA: UNKNOWN, UNKNOWN FORMULATION)
     Route: 065
  54. DICLOFENAC [Suspect]
     Active Substance: DICLOFENAC
     Indication: Rheumatoid arthritis
     Dosage: UNK
     Route: 048
  55. LEFLUNOMIDE [Suspect]
     Active Substance: LEFLUNOMIDE
     Indication: Rheumatoid arthritis
     Dosage: 20 MG
     Route: 048
  56. LEFLUNOMIDE [Suspect]
     Active Substance: LEFLUNOMIDE
     Dosage: UNK(PATIENT ROA: UNKNOWN)
     Route: 065
  57. LEFLUNOMIDE [Suspect]
     Active Substance: LEFLUNOMIDE
     Dosage: 20 MG, QD(PATIENT ROA: UNKNOWN)
     Route: 065
  58. LEFLUNOMIDE [Suspect]
     Active Substance: LEFLUNOMIDE
     Dosage: 1 DOSAGE FORM
     Route: 048
  59. LEFLUNOMIDE [Suspect]
     Active Substance: LEFLUNOMIDE
     Dosage: 10 DOSAGE FORM, QD
     Route: 048
  60. LEFLUNOMIDE [Suspect]
     Active Substance: LEFLUNOMIDE
     Dosage: 20 MG
     Route: 065
  61. MYCOPHENOLATE MOFETIL [Suspect]
     Active Substance: MYCOPHENOLATE MOFETIL
     Indication: Rheumatoid arthritis
     Dosage: 20 MG(DOSE FORM: UNKNOWNPATIENT ROA: UNKNOWN)
     Route: 065
  62. MYCOPHENOLATE MOFETIL [Suspect]
     Active Substance: MYCOPHENOLATE MOFETIL
     Dosage: UNK (CAPSULE)
     Route: 065
  63. COSENTYX [Suspect]
     Active Substance: SECUKINUMAB
     Indication: Rheumatoid arthritis
     Dosage: UNK(PATIENT ROA: UNKNOWN)
     Route: 065
  64. COSENTYX [Suspect]
     Active Substance: SECUKINUMAB
     Indication: Psoriatic arthropathy
     Dosage: UNK(PATIENT ROA: UNKNOWN)
     Route: 065
  65. COSENTYX [Suspect]
     Active Substance: SECUKINUMAB
     Dosage: UNK(PATIENT ROA: UNKNOWN)
     Route: 065
  66. COSENTYX [Suspect]
     Active Substance: SECUKINUMAB
     Dosage: UNK(PATIENT ROA: UNKNOWN)
     Route: 065
  67. QUETIAPINE FUMARATE [Suspect]
     Active Substance: QUETIAPINE FUMARATE
     Indication: Product used for unknown indication
     Dosage: UNK
     Route: 048
  68. QUETIAPINE FUMARATE [Suspect]
     Active Substance: QUETIAPINE FUMARATE
     Dosage: UNK (PATIENT ROA: UNKNOWN, UNKNOWN FORMULATION)
     Route: 065
  69. DICLOFENAC [Suspect]
     Active Substance: DICLOFENAC
     Indication: Product used for unknown indication
     Dosage: UNK(DOSE FORM: UNKNOWNPATIENT ROA: UNKNOWN)
     Route: 065
  70. DICLOFENAC [Suspect]
     Active Substance: DICLOFENAC
     Dosage: 50 MG(PATIENT ROA: UNKNOWN)
     Route: 065
  71. DICLOFENAC [Suspect]
     Active Substance: DICLOFENAC
     Dosage: DOSE FORM: UNKNOWNPATIENT ROA: UNKNOWN
     Route: 065
  72. DICLOFENAC [Suspect]
     Active Substance: DICLOFENAC
     Dosage: UNK(DOSE FORM: UNKNOWNPATIENT ROA: UNKNOWN)
     Route: 065
  73. DICLOFENAC [Suspect]
     Active Substance: DICLOFENAC
     Dosage: 50 MG(DOSE FORM: NOT SPECIFIEDPATIENT ROA: UNKNOWN)
     Route: 065
  74. DICLOFENAC [Suspect]
     Active Substance: DICLOFENAC
     Dosage: 50 MG(PATIENT ROA: UNKNOWN)
     Route: 065
  75. DICLOFENAC [Suspect]
     Active Substance: DICLOFENAC
     Dosage: UNK(PATIENT ROA: UNKNOWN)
     Route: 065
  76. DICLOFENAC [Suspect]
     Active Substance: DICLOFENAC
     Dosage: UNK(PATIENT ROA: UNKNOWN)
     Route: 065

REACTIONS (24)
  - Pulmonary fibrosis [Fatal]
  - Intentional product use issue [Fatal]
  - Off label use [Fatal]
  - Osteoarthritis [Fatal]
  - Osteoporosis [Fatal]
  - Pain [Fatal]
  - Pain in extremity [Fatal]
  - Pemphigus [Fatal]
  - Pericarditis [Fatal]
  - Peripheral swelling [Fatal]
  - Pneumonia [Fatal]
  - Prescribed overdose [Fatal]
  - Prescribed underdose [Fatal]
  - Pruritus [Fatal]
  - Pyrexia [Fatal]
  - Retinitis [Fatal]
  - Rheumatic fever [Fatal]
  - Oedema peripheral [Fatal]
  - Product use in unapproved indication [Fatal]
  - Product use issue [Fatal]
  - Psoriasis [Fatal]
  - Psoriatic arthropathy [Fatal]
  - Rash [Fatal]
  - Red blood cell sedimentation rate increased [Fatal]
